FAERS Safety Report 16337694 (Version 2)
Quarter: 2019Q2

REPORT INFORMATION
  Report Type: Report from Study
  Country: IT (occurrence: IT)
  Receive Date: 20190521
  Receipt Date: 20190530
  Transmission Date: 20190711
  Serious: Yes (Other)
  Sender: FDA-Public Use
  Company Number: IT-INCYTE CORPORATION-2019IN004814

PATIENT

DRUGS (5)
  1. JAKAVI [Suspect]
     Active Substance: RUXOLITINIB
     Dosage: 20 OT, UNK
     Route: 065
     Dates: start: 20171017, end: 20180205
  2. JAKAVI [Suspect]
     Active Substance: RUXOLITINIB
     Dosage: 25 OT, UNK
     Route: 065
     Dates: start: 20180206, end: 20180224
  3. JAKAVI [Suspect]
     Active Substance: RUXOLITINIB
     Indication: MYELOFIBROSIS
     Dosage: 10 OT, UNK
     Route: 065
     Dates: start: 20170818, end: 20170914
  4. JAKAVI [Suspect]
     Active Substance: RUXOLITINIB
     Dosage: 15 OT, UNK
     Route: 065
     Dates: start: 20170915, end: 20171016
  5. JAKAVI [Suspect]
     Active Substance: RUXOLITINIB
     Dosage: 30 OT, UNK
     Route: 065
     Dates: start: 20180225

REACTIONS (1)
  - Enterocolitis infectious [Recovered/Resolved]

NARRATIVE: CASE EVENT DATE: 20190331
